FAERS Safety Report 14745909 (Version 5)
Quarter: 2019Q2

REPORT INFORMATION
  Report Type: Spontaneous
  Country: US (occurrence: US)
  Receive Date: 20180411
  Receipt Date: 20190531
  Transmission Date: 20190711
  Serious: Yes (Hospitalization, Other)
  Sender: FDA-Public Use
  Company Number: US-GLAXOSMITHKLINE-US2018GSK061108

PATIENT
  Sex: Female

DRUGS (3)
  1. PANTOPRAZOLE [Suspect]
     Active Substance: PANTOPRAZOLE
     Indication: GASTROOESOPHAGEAL REFLUX DISEASE
     Dosage: 40 MG, QD
     Route: 065
  2. PREVACID [Suspect]
     Active Substance: LANSOPRAZOLE
     Indication: PRODUCT USED FOR UNKNOWN INDICATION
     Dosage: 40 MG, QD
     Route: 065
  3. PREVACID [Suspect]
     Active Substance: LANSOPRAZOLE
     Indication: PRODUCT USED FOR UNKNOWN INDICATION
     Dosage: 15 MG, QD
     Route: 065

REACTIONS (19)
  - Acute kidney injury [Unknown]
  - Urethral stenosis [Unknown]
  - Dysuria [Unknown]
  - Renal atrophy [Unknown]
  - Hydronephrosis [Unknown]
  - Hydroureter [Unknown]
  - Renal impairment [Unknown]
  - Micturition urgency [Unknown]
  - Nephrocalcinosis [Unknown]
  - Renal injury [Unknown]
  - Kidney enlargement [Unknown]
  - Haematuria [Unknown]
  - Nephropathy [Unknown]
  - Chronic kidney disease [Unknown]
  - Pollakiuria [Unknown]
  - Ureterolithiasis [Unknown]
  - Kidney infection [Unknown]
  - Nephrolithiasis [Unknown]
  - Pyelonephritis fungal [Unknown]
